FAERS Safety Report 9177511 (Version 3)
Quarter: 2013Q4

REPORT INFORMATION
  Report Type: Spontaneous
  Country: FR (occurrence: None)
  Receive Date: 20130319
  Receipt Date: 20131022
  Transmission Date: 20140711
  Serious: Yes (Hospitalization)
  Sender: FDA-Public Use
  Company Number: DSM-2013-00340

PATIENT
  Age: 76 Year
  Sex: Male

DRUGS (6)
  1. SEVIKAR (OLMESARTAN MEDOXOMIL, AMLODIPINE BESILATE) (TABLET) (OLMESARTAN MEDOXOMIL, AMLODIPINE BESILATE) [Suspect]
     Indication: HYPERTENSION
     Route: 048
     Dates: start: 20121101, end: 20130214
  2. EUREAS 50 MG/1000 MG (METFORMIN HYDROCHLORIDE VILDAGLIPTIN) (COATED TABLET) (METFORMIN HYDROCHLORIDE, VILDAGLIPTIN) [Concomitant]
  3. GLICLAZIDE(GLICLAZIDE)(GLICLAZIDE) [Concomitant]
  4. CRESTOR(ROSUVASTATIN)(ROSUVASTATIN) [Concomitant]
  5. KARDEGIC(ACETYLSALICYLIC ACID, ACETYLSALICYLATE LYSINE)(ACETYLSALICYLIC ACID, ACETYLSALICYLATE LYSINE) [Concomitant]
  6. ATENOLOL [Suspect]

REACTIONS (1)
  - Pemphigoid [None]
